FAERS Safety Report 12229102 (Version 3)
Quarter: 2016Q3

REPORT INFORMATION
  Report Type: Spontaneous
  Country: US (occurrence: US)
  Receive Date: 20160401
  Receipt Date: 20160912
  Transmission Date: 20161109
  Serious: Yes (Hospitalization)
  Sender: FDA-Public Use
  Company Number: US-JNJFOC-20160301393

PATIENT
  Age: 70 Year
  Sex: Female

DRUGS (7)
  1. XARELTO [Suspect]
     Active Substance: RIVAROXABAN
     Indication: ATRIAL FIBRILLATION
     Route: 048
     Dates: start: 20120505
  2. XARELTO [Suspect]
     Active Substance: RIVAROXABAN
     Indication: DIABETES MELLITUS
     Route: 048
     Dates: start: 20120505
  3. XARELTO [Suspect]
     Active Substance: RIVAROXABAN
     Indication: ATRIAL FIBRILLATION
     Route: 048
     Dates: start: 20130309, end: 20150502
  4. XARELTO [Suspect]
     Active Substance: RIVAROXABAN
     Indication: ATRIAL FIBRILLATION
     Route: 048
     Dates: end: 20150529
  5. METOLAZONE. [Concomitant]
     Active Substance: METOLAZONE
     Route: 065
  6. XARELTO [Suspect]
     Active Substance: RIVAROXABAN
     Indication: DIABETES MELLITUS
     Route: 048
     Dates: start: 20130309, end: 20150502
  7. XARELTO [Suspect]
     Active Substance: RIVAROXABAN
     Indication: DIABETES MELLITUS
     Route: 048
     Dates: end: 20150529

REACTIONS (3)
  - Rectal haemorrhage [Unknown]
  - Product use issue [Unknown]
  - Off label use [Unknown]

NARRATIVE: CASE EVENT DATE: 20130309
